FAERS Safety Report 14490712 (Version 2)
Quarter: 2018Q1

REPORT INFORMATION
  Report Type: Spontaneous
  Country: IT (occurrence: IT)
  Receive Date: 20180206
  Receipt Date: 20180214
  Transmission Date: 20180509
  Serious: Yes (Other)
  Sender: FDA-Public Use
  Company Number: IT-ACCORD-063195

PATIENT
  Age: 71 Year
  Sex: Male

DRUGS (6)
  1. CARBOPLATIN. [Suspect]
     Active Substance: CARBOPLATIN
     Indication: PROSTATE CANCER RECURRENT
     Dosage: AREA UNDER THE CURVE 4 DAY 1, Q21
  2. ETOPOSIDE. [Suspect]
     Active Substance: ETOPOSIDE
     Indication: PROSTATE CANCER RECURRENT
     Dosage: DAYS 1, 2, 3 Q21
  3. SODIUM CHLORIDE. [Concomitant]
     Active Substance: SODIUM CHLORIDE
  4. TOLVAPTAN [Concomitant]
     Active Substance: TOLVAPTAN
  5. GRANULOCYTE COLONY STIMULATING [Concomitant]
     Active Substance: GRANULOCYTE COLONY-STIMULATING FACTOR NOS
  6. ERYTHROPOIETIN [Concomitant]
     Active Substance: ERYTHROPOIETIN

REACTIONS (5)
  - Fatigue [Recovering/Resolving]
  - Neutropenia [Recovering/Resolving]
  - Renal impairment [Unknown]
  - Inappropriate antidiuretic hormone secretion [Unknown]
  - Anaemia [Recovering/Resolving]
